FAERS Safety Report 10970583 (Version 1)
Quarter: 2015Q1

REPORT INFORMATION
  Report Type: Spontaneous
  Country: US (occurrence: None)
  Receive Date: 20150330
  Receipt Date: 20150330
  Transmission Date: 20150721
  Serious: Yes (Other)
  Sender: FDA-Public Use
  Company Number: None

PATIENT
  Age: 10 Year
  Sex: Male

DRUGS (3)
  1. DEPAKOTE [Suspect]
     Active Substance: DIVALPROEX SODIUM
     Indication: SEIZURE
     Dosage: 1 QAM PO, 2 QPM PO
     Route: 048
  2. DEPAKOTE [Suspect]
     Active Substance: DIVALPROEX SODIUM
     Indication: ENCEPHALOPATHY
     Dosage: 1 QAM PO, 2 QPM PO
     Route: 048
  3. DEPAKOTE [Suspect]
     Active Substance: DIVALPROEX SODIUM
     Indication: HYDROCEPHALUS
     Dosage: 1 QAM PO, 2 QPM PO
     Route: 048

REACTIONS (5)
  - Tremor [None]
  - Product substitution issue [None]
  - Seizure [None]
  - Drug level fluctuating [None]
  - Toxicity to various agents [None]

NARRATIVE: CASE EVENT DATE: 20090303
